FAERS Safety Report 9759365 (Version 1)
Quarter: 2013Q4

REPORT INFORMATION
  Report Type: Spontaneous
  Country: US (occurrence: None)
  Receive Date: 20131216
  Receipt Date: 20131216
  Transmission Date: 20140711
  Serious: Yes (Other)
  Sender: FDA-Public Use
  Company Number: 163-21880-12040120(0)

PATIENT
  Age: 65 Year
  Sex: Female

DRUGS (1)
  1. REVLIMID (LENALIDOMIDE) (25 MILLIGRAM, CAPSULES) [Suspect]
     Indication: PLASMA CELL MYELOMA
     Dosage: 25 MG, DAILY FOR 21 DAYS EVERY 28 DAYS, PO ?25 MG, 1 IN 1 D, PO? ? ?

REACTIONS (5)
  - Swelling face [None]
  - Muscle spasms [None]
  - Bone pain [None]
  - Local swelling [None]
  - Neuropathy peripheral [None]
